FAERS Safety Report 5892764-5 (Version None)
Quarter: 2008Q3

REPORT INFORMATION
  Report Type: 
  Country: None (occurrence: None)
  Receive Date: 20080919
  Receipt Date: 20080919
  Transmission Date: 20090109
  Serious: Yes (Hospitalization)
  Sender: FDA-Public Use
  Company Number: None

PATIENT
  Sex: Male
  Weight: 73 kg

DRUGS (1)
  1. CISPLATIN [Suspect]
     Dosage: 200 MG
     Dates: end: 20080806

REACTIONS (9)
  - AGITATION [None]
  - ANTIPSYCHOTIC DRUG LEVEL ABOVE THERAPEUTIC [None]
  - CONFUSIONAL STATE [None]
  - INFECTION [None]
  - LEUKOCYTOSIS [None]
  - MALNUTRITION [None]
  - MENTAL DISORDER [None]
  - MUCOSAL INFLAMMATION [None]
  - SPEECH DISORDER [None]
